FAERS Safety Report 11584945 (Version 3)
Quarter: 2015Q4

REPORT INFORMATION
  Report Type: Spontaneous
  Country: JP (occurrence: JP)
  Receive Date: 20151001
  Receipt Date: 20151116
  Transmission Date: 20160304
  Serious: Yes (Hospitalization, Other)
  Sender: FDA-Public Use
  Company Number: JP-GLAXOSMITHKLINE-JP2015JPN138308

PATIENT
  Age: 30 Year
  Sex: Female
  Weight: 123 kg

DRUGS (4)
  1. RIVOTRIL [Concomitant]
     Active Substance: CLONAZEPAM
     Dosage: 1.5 MG, QD
  2. ABILIFY [Concomitant]
     Active Substance: ARIPIPRAZOLE
     Indication: MANIA
     Dosage: 12 MG, QD
     Dates: start: 20140822
  3. LAMICTAL [Suspect]
     Active Substance: LAMOTRIGINE
     Indication: DEPRESSIVE SYMPTOM
     Dosage: 150 MG, QD
     Route: 048
     Dates: start: 20140310
  4. DIAZEPAM. [Concomitant]
     Active Substance: DIAZEPAM
     Indication: INSOMNIA
     Dosage: 30 MG, QD
     Dates: start: 20150320

REACTIONS (2)
  - Suicidal ideation [Recovered/Resolved]
  - Drug effect incomplete [Unknown]

NARRATIVE: CASE EVENT DATE: 20150219
